FAERS Safety Report 19062187 (Version 1)
Quarter: 2021Q1

REPORT INFORMATION
  Report Type: Spontaneous
  Country: US (occurrence: US)
  Receive Date: 20210325
  Receipt Date: 20210325
  Transmission Date: 20210420
  Serious: No
  Sender: FDA-Public Use
  Company Number: None

PATIENT
  Age: 61 Year
  Sex: Female

DRUGS (1)
  1. AMBRISENTAN 10MG TABLETS 30/BO: 10MG [Suspect]
     Active Substance: AMBRISENTAN
     Indication: PULMONARY HYPERTENSION
     Route: 048
     Dates: start: 20160119

REACTIONS (5)
  - Peripheral swelling [None]
  - Cellulitis [None]
  - Skin discolouration [None]
  - Thrombosis [None]
  - Pain in extremity [None]

NARRATIVE: CASE EVENT DATE: 20210316
